FAERS Safety Report 9162989 (Version 1)
Quarter: 2012Q4

REPORT INFORMATION
  Report Type: 
  Country: GB (occurrence: GB)
  Receive Date: 20121220
  Receipt Date: 20121220
  Transmission Date: 20130627
  Serious: Yes (Disabling)
  Sender: FDA-Public Use
  Company Number: GB-RB-047783-12

PATIENT
  Age: 80 Year
  Sex: Female

DRUGS (3)
  1. BUPRENORPHINE [Suspect]
     Indication: PAIN
     Route: 062
     Dates: start: 20121029
  2. BUPRENORPHINE [Suspect]
     Route: 062
     Dates: end: 20121130
  3. DICLOFENAC [Concomitant]
     Indication: PRODUCT USED FOR UNKNOWN INDICATION
     Dosage: Dosing details unknown
     Route: 065

REACTIONS (1)
  - Inappropriate antidiuretic hormone secretion [Unknown]
